FAERS Safety Report 10183403 (Version 2)
Quarter: 2014Q2

REPORT INFORMATION
  Report Type: Spontaneous
  Country: CA (occurrence: CA)
  Receive Date: 20140520
  Receipt Date: 20140520
  Transmission Date: 20141212
  Serious: Yes (Life-Threatening, Hospitalization)
  Sender: FDA-Public Use
  Company Number: CA-TEVA-476858USA

PATIENT
  Age: 78 Year
  Sex: Female
  Weight: 60.2 kg

DRUGS (13)
  1. TREANDA [Suspect]
     Indication: CHRONIC LYMPHOCYTIC LEUKAEMIA
     Dosage: 159 MG (100 MG/M2) DAY 1, CYCLE 2
     Route: 042
     Dates: start: 20140410
  2. TREANDA [Suspect]
     Dosage: 150 MG (100 MG/M2) CYCLE 1
     Route: 042
     Dates: start: 20140310, end: 20140311
  3. SYNTHROID [Concomitant]
     Dosage: .1 MILLIGRAM DAILY;
     Route: 048
  4. ASA [Concomitant]
     Dosage: 325 MILLIGRAM DAILY;
     Route: 048
  5. AMLODIPINE [Concomitant]
     Dosage: 10 MILLIGRAM DAILY;
     Route: 048
  6. ALLOPURINOL [Concomitant]
     Dosage: 300 MILLIGRAM DAILY;
     Route: 048
     Dates: start: 20140221, end: 20140321
  7. REACTINE [Concomitant]
     Route: 048
  8. NEUPOGEN [Concomitant]
     Dosage: 300 MICROGRAM DAILY;
     Route: 058
     Dates: start: 20140312, end: 20140321
  9. ONDANSETRON [Concomitant]
     Dosage: 16 MILLIGRAM DAILY;
     Route: 048
     Dates: start: 20140310, end: 20140311
  10. ONDANSETRON [Concomitant]
     Dosage: 16 MILLIGRAM DAILY;
     Route: 048
     Dates: start: 20140410, end: 20140410
  11. DEXAMETHASONE [Concomitant]
     Dosage: 10 MILLIGRAM DAILY;
     Route: 048
     Dates: start: 20140310, end: 20140311
  12. DEXAMETHASONE [Concomitant]
     Dosage: 10 MILLIGRAM DAILY;
     Route: 048
     Dates: start: 20140410, end: 20140410
  13. VITAMIN D [Concomitant]

REACTIONS (11)
  - Pyrexia [Recovered/Resolved]
  - Renal failure acute [Recovered/Resolved]
  - Rash erythematous [Recovered/Resolved]
  - Acute coronary syndrome [Recovered/Resolved]
  - Clostridium difficile colitis [Recovered/Resolved]
  - Oral herpes [Recovered/Resolved]
  - Herpes simplex oesophagitis [Recovered/Resolved]
  - Pneumonia viral [Recovered/Resolved]
  - Respiratory disorder [Recovered/Resolved]
  - Haemodynamic instability [Recovered/Resolved]
  - Hypotension [Recovered/Resolved]
